FAERS Safety Report 6542931-2 (Version None)
Quarter: 2010Q1

REPORT INFORMATION
  Report Type: 
  Country: None (occurrence: None)
  Receive Date: 20100120
  Receipt Date: 20100105
  Transmission Date: 20100710
  Serious: Yes (Death)
  Sender: FDA-Public Use
  Company Number: US-TYCO HEALTHCARE/MALLINCKRODT-T201000043

PATIENT
  Age: 34 Year
  Sex: Male

DRUGS (3)
  1. FENTANYL [Suspect]
     Dosage: 9 PATCHES, 25 MCG/HOUR
     Route: 062
  2. ALPRAZOLAM [Suspect]
     Dosage: UNK
  3. CITALOPRAM [Suspect]
     Dosage: UNK

REACTIONS (5)
  - BRAIN OEDEMA [None]
  - CARDIO-RESPIRATORY ARREST [None]
  - COMPLETED SUICIDE [None]
  - DRUG TOXICITY [None]
  - PULMONARY OEDEMA [None]
